FAERS Safety Report 21695974 (Version 1)
Quarter: 2022Q4

REPORT INFORMATION
  Report Type: Spontaneous
  Country: US (occurrence: None)
  Receive Date: 20221206
  Receipt Date: 20221206
  Transmission Date: 20230112
  Serious: Yes (Death, Hospitalization)
  Sender: FDA-Public Use
  Company Number: None

PATIENT
  Age: 98 Year
  Sex: Male

DRUGS (1)
  1. PROMACTA [Suspect]
     Active Substance: ELTROMBOPAG OLAMINE
     Indication: Thrombocytopenia
     Dosage: FREQUENCY : DAILY;?
     Route: 048
     Dates: start: 20220912, end: 20221118

REACTIONS (6)
  - Agitation [None]
  - Confusional state [None]
  - Hallucination [None]
  - Dyspnoea [None]
  - COVID-19 pneumonia [None]
  - Sepsis [None]

NARRATIVE: CASE EVENT DATE: 20221118
